FAERS Safety Report 13952658 (Version 1)
Quarter: 2017Q3

REPORT INFORMATION
  Report Type: Spontaneous
  Country: SE (occurrence: SE)
  Receive Date: 20170911
  Receipt Date: 20170911
  Transmission Date: 20171128
  Serious: Yes (Other)
  Sender: FDA-Public Use
  Company Number: SE-ROCHE-1989955

PATIENT
  Age: 31 Year
  Sex: Female

DRUGS (1)
  1. ROCEPHALIN [Suspect]
     Active Substance: CEFTRIAXONE
     Indication: GUILLAIN-BARRE SYNDROME
     Route: 065
     Dates: end: 20170105

REACTIONS (4)
  - Pancytopenia [Unknown]
  - Urticaria [Unknown]
  - Myalgia [Unknown]
  - Pyrexia [Unknown]

NARRATIVE: CASE EVENT DATE: 20170103
